FAERS Safety Report 19122981 (Version 2)
Quarter: 2021Q2

REPORT INFORMATION
  Report Type: Report from Study
  Country: US (occurrence: US)
  Receive Date: 20210412
  Receipt Date: 20210518
  Transmission Date: 20210717
  Serious: Yes (Death, Life-Threatening, Other)
  Sender: FDA-Public Use
  Company Number: US-ASTRAZENECA-2021A281859

PATIENT
  Age: 27329 Day
  Sex: Male
  Weight: 77.1 kg

DRUGS (2)
  1. SYMBICORT [Suspect]
     Active Substance: BUDESONIDE\FORMOTEROL FUMARATE DIHYDRATE
     Indication: EMPHYSEMA
     Dosage: 160/4.5MCG , 2 PUFFS TWO TIMES A DAY BY MOUTH
     Route: 055
  2. SYMBICORT [Suspect]
     Active Substance: BUDESONIDE\FORMOTEROL FUMARATE DIHYDRATE
     Indication: CHRONIC OBSTRUCTIVE PULMONARY DISEASE
     Dosage: 160/4.5MCG , 2 PUFFS TWO TIMES A DAY BY MOUTH
     Route: 055

REACTIONS (6)
  - Dyspnoea [Unknown]
  - Nausea [Unknown]
  - Escherichia infection [Unknown]
  - Cardio-respiratory arrest [Fatal]
  - Pulse absent [Unknown]
  - Pallor [Unknown]

NARRATIVE: CASE EVENT DATE: 20210323
